FAERS Safety Report 15304272 (Version 1)
Quarter: 2018Q3

REPORT INFORMATION
  Report Type: Spontaneous
  Country: US (occurrence: US)
  Receive Date: 20180809
  Receipt Date: 20180809
  Transmission Date: 20181010
  Serious: No
  Sender: FDA-Public Use
  Company Number: None

PATIENT
  Age: 78 Year
  Sex: Female

DRUGS (2)
  1. OPSUMIT [Suspect]
     Active Substance: MACITENTAN
     Indication: PULMONARY ARTERIAL HYPERTENSION
     Route: 048
     Dates: start: 20171108
  2. 4M .. R 4 [Concomitant]

REACTIONS (4)
  - Pneumonia [None]
  - Somnolence [None]
  - Chronic respiratory failure [None]
  - Fall [None]

NARRATIVE: CASE EVENT DATE: 20180702
